FAERS Safety Report 7087227-8 (Version None)
Quarter: 2010Q4

REPORT INFORMATION
  Report Type: 
  Country: None (occurrence: None)
  Receive Date: 20101107
  Receipt Date: 20090206
  Transmission Date: 20110411
  Serious: Yes (Other)
  Sender: FDA-Public Use
  Company Number: PHHY2009US66453

PATIENT
  Sex: Male
  Weight: 31 kg

DRUGS (1)
  1. EXJADE [Suspect]
     Dosage: 625 MG, QD
     Route: 048

REACTIONS (2)
  - HEARING IMPAIRED [None]
  - VISUAL IMPAIRMENT [None]
